FAERS Safety Report 8109840-9 (Version None)
Quarter: 2012Q1

REPORT INFORMATION
  Report Type: 
  Country: None (occurrence: None)
  Receive Date: 20120202
  Receipt Date: 20120120
  Transmission Date: 20120608
  Serious: No
  Sender: FDA-Public Use
  Company Number: US-AMGEN-USASP2012004370

PATIENT
  Age: 68 Year
  Sex: Female

DRUGS (4)
  1. ENBREL [Suspect]
     Indication: RHEUMATOID ARTHRITIS
     Dosage: 50 MG, QWK
     Dates: start: 20111001
  2. SULFADIAZINE [Concomitant]
     Dosage: UNK
  3. NAPROXEN (ALEVE) [Concomitant]
     Dosage: AT NIGHT
  4. PREDNISONE TAB [Concomitant]
     Dosage: UNK

REACTIONS (8)
  - DISCOMFORT [None]
  - INJECTION SITE ERYTHEMA [None]
  - INJECTION SITE HAEMATOMA [None]
  - RHEUMATOID ARTHRITIS [None]
  - ARTHRALGIA [None]
  - OEDEMA PERIPHERAL [None]
  - INJECTION SITE PRURITUS [None]
  - DRUG INEFFECTIVE [None]
